FAERS Safety Report 8531396-7 (Version None)
Quarter: 2012Q3

REPORT INFORMATION
  Report Type: 
  Country: None (occurrence: None)
  Receive Date: 20120723
  Receipt Date: 20120713
  Transmission Date: 20120928
  Serious: Yes (Other)
  Sender: FDA-Public Use
  Company Number: FR-ASTRAZENECA-2012SE49302

PATIENT
  Age: 62 Year
  Sex: Male

DRUGS (6)
  1. CRESTOR [Suspect]
     Indication: HYPERCHOLESTEROLAEMIA
     Route: 048
     Dates: start: 20110702, end: 20110715
  2. BISOPROLOL FUMARATE [Concomitant]
  3. PERINDOPRIL ERBUMINE [Concomitant]
  4. ASPIRIN [Concomitant]
  5. PANTOPRAZOLE SODIUM [Concomitant]
  6. NITROGLYCERIN [Concomitant]

REACTIONS (1)
  - DRUG-INDUCED LIVER INJURY [None]
